FAERS Safety Report 6532343-X (Version None)
Quarter: 2010Q1

REPORT INFORMATION
  Report Type: 
  Country: None (occurrence: None)
  Receive Date: 20100108
  Receipt Date: 20100104
  Transmission Date: 20100710
  Serious: Yes (Death)
  Sender: FDA-Public Use
  Company Number: US-PFIZER INC-2010001639

PATIENT
  Age: 23 Year
  Sex: Male

DRUGS (5)
  1. HYDROXYZINE PAMOATE [Suspect]
     Route: 048
  2. MORPHINE HCL ELIXIR [Suspect]
     Route: 048
  3. OXYCODONE [Suspect]
     Route: 048
  4. COCAINE [Suspect]
     Route: 048
  5. CARBAMAZEPINE [Suspect]
     Route: 048

REACTIONS (3)
  - CARDIAC ARREST [None]
  - COMPLETED SUICIDE [None]
  - RESPIRATORY ARREST [None]
